FAERS Safety Report 14831277 (Version 1)
Quarter: 2018Q2

REPORT INFORMATION
  Report Type: Spontaneous
  Country: US (occurrence: US)
  Receive Date: 20180501
  Receipt Date: 20180501
  Transmission Date: 20180711
  Serious: Yes (Other)
  Sender: FDA-Public Use
  Company Number: US-AMGEN-USASP2018056200

PATIENT
  Age: 61 Year
  Sex: Female

DRUGS (2)
  1. ENBREL [Suspect]
     Active Substance: ETANERCEPT
     Indication: ARTHRITIS
     Dosage: 50 MG, QWK EVERY MONDAY
     Route: 065
     Dates: start: 201712
  2. ENBREL [Suspect]
     Active Substance: ETANERCEPT
     Dosage: 50 MG, QWK EVERY MONDAY
     Route: 065
     Dates: start: 201803

REACTIONS (3)
  - Toe operation [Unknown]
  - Alopecia [Not Recovered/Not Resolved]
  - Panniculitis [Unknown]

NARRATIVE: CASE EVENT DATE: 20180214
